FAERS Safety Report 7369545-9 (Version None)
Quarter: 2011Q1

REPORT INFORMATION
  Report Type: 
  Country: None (occurrence: None)
  Receive Date: 20110323
  Receipt Date: 20110322
  Transmission Date: 20110831
  Serious: No
  Sender: FDA-Public Use
  Company Number: US-TEVA-271838USA

PATIENT
  Sex: Female
  Weight: 52.21 kg

DRUGS (2)
  1. LEVORA 0.15/30-21 [Concomitant]
     Indication: CONTRACEPTION
     Route: 048
     Dates: start: 20070101
  2. PLAN B ONE-STEP [Suspect]
     Indication: POST COITAL CONTRACEPTION
     Route: 048
     Dates: start: 20110313, end: 20110313

REACTIONS (1)
  - MENSTRUATION IRREGULAR [None]
